FAERS Safety Report 4781335-X (Version None)
Quarter: 2005Q3

REPORT INFORMATION
  Report Type: 
  Country: None (occurrence: None)
  Receive Date: 20050914
  Receipt Date: 20050803
  Transmission Date: 20060218
  Serious: No
  Sender: FDA-Public Use
  Company Number: IND-AE-05-SAN-049

PATIENT
  Age: 65 Year
  Sex: Female

DRUGS (3)
  1. SANCTURA [Suspect]
     Indication: HYPERTONIC BLADDER
     Dosage: 20MG BID; ORAL
     Route: 048
     Dates: start: 20050724
  2. HUMULIN N [Concomitant]
  3. PREDNISONE [Concomitant]

REACTIONS (3)
  - COUGH [None]
  - DRY MOUTH [None]
  - LARYNGITIS [None]
